FAERS Safety Report 9616673 (Version 3)
Quarter: 2013Q4

REPORT INFORMATION
  Report Type: Spontaneous
  Country: US (occurrence: US)
  Receive Date: 20131011
  Receipt Date: 20131217
  Transmission Date: 20140711
  Serious: Yes (Other)
  Sender: FDA-Public Use
  Company Number: US-AMGEN-USASP2013069817

PATIENT
  Age: 69 Year
  Sex: Female
  Weight: 61.68 kg

DRUGS (15)
  1. PROLIA [Suspect]
     Indication: OSTEOPOROSIS
     Dosage: 60 MG, UNK
     Route: 058
     Dates: start: 20121217
  2. CELEBREX [Concomitant]
     Dosage: 200 MG, AS NECESSARY
  3. PREDNISONE [Concomitant]
     Dosage: 1 MG, UNK
  4. METHOTREXATE [Concomitant]
     Dosage: UNK UNK, QWK
  5. TRAMADOL [Concomitant]
  6. FOLIC ACID [Concomitant]
  7. TRIAMTERENE AND HYDROCHLOROTHIAZIDE [Concomitant]
  8. PRAVASTATIN [Concomitant]
  9. SYNTHROID [Concomitant]
  10. ESTROGEN [Concomitant]
  11. ASPIRIN [Concomitant]
     Dosage: 81 MG, QD
  12. GINKO                              /01003101/ [Concomitant]
  13. GLUCOSAMINE + CHONDROITIN          /01430901/ [Concomitant]
  14. RESTASIS [Concomitant]
  15. NAMENDA [Concomitant]
     Indication: SPEECH DISORDER

REACTIONS (5)
  - Gingival erosion [Unknown]
  - Gingival disorder [Unknown]
  - Gingival cyst [Unknown]
  - Tooth disorder [Unknown]
  - Jaw disorder [Unknown]
